FAERS Safety Report 24215528 (Version 1)
Quarter: 2024Q3

REPORT INFORMATION
  Report Type: Spontaneous
  Country: FR (occurrence: FR)
  Receive Date: 20240816
  Receipt Date: 20240816
  Transmission Date: 20241016
  Serious: Yes (Other)
  Sender: AUROBINDO
  Company Number: FR-ROCHE-2988852

PATIENT
  Age: 51 Year
  Sex: Male
  Weight: 64 kg

DRUGS (23)
  1. CARBOPLATIN [Suspect]
     Active Substance: CARBOPLATIN
     Indication: Non-small cell lung cancer
     Dosage: 660 MILLIGRAM
     Route: 042
     Dates: start: 20210507
  2. ATEZOLIZUMAB [Suspect]
     Active Substance: ATEZOLIZUMAB
     Indication: Non-small cell lung cancer
     Dosage: UNK
     Route: 042
     Dates: start: 20210507
  3. PEMBROLIZUMAB [Suspect]
     Active Substance: PEMBROLIZUMAB
     Indication: Non-small cell lung cancer
     Dosage: UNK
     Route: 042
     Dates: start: 20210507
  4. TIRAGOLUMAB [Suspect]
     Active Substance: TIRAGOLUMAB
     Indication: Non-small cell lung cancer
     Dosage: UNK
     Route: 042
     Dates: start: 20210507
  5. EBASTINE [Concomitant]
     Active Substance: EBASTINE
     Indication: Pruritus
     Dosage: UNK
     Route: 065
  6. CHLORHEXIDINE [Concomitant]
     Active Substance: CHLORHEXIDINE
     Indication: Product used for unknown indication
     Dosage: UNK, GIVEN FOR PROPHYLAXIS IS YES ;ONGOING: YES
     Route: 065
     Dates: start: 20210618
  7. Dexeryl [Concomitant]
     Indication: Rash
     Dosage: UNK
     Route: 065
     Dates: start: 20211201
  8. DIPROSONE [Concomitant]
     Active Substance: BETAMETHASONE DIPROPIONATE
     Indication: Rash
     Dosage: UNK UNK, PRN (YESFREQUENCY TEXT:PRN)
     Route: 061
     Dates: start: 202109
  9. ELIQUIS [Concomitant]
     Active Substance: APIXABAN
     Indication: Thrombosis
     Dosage: UNK, YES
     Route: 065
     Dates: start: 20210907
  10. EMEND [Concomitant]
     Active Substance: APREPITANT
     Indication: Prophylaxis
     Dosage: UNK, GIVEN FOR PROPHYLAXIS IS YES ;ONGOING: YES
     Route: 065
     Dates: start: 20210507
  11. FOLIC ACID [Concomitant]
     Active Substance: FOLIC ACID
     Indication: Prophylaxis
     Dosage: UNK, GIVEN FOR PROPHYLAXIS IS YES ;ONGOING: YES
     Route: 065
     Dates: start: 20210507
  12. ACETAMINOPHEN [Concomitant]
     Active Substance: ACETAMINOPHEN
     Indication: Ligament sprain
     Dosage: UNK, YES
     Route: 065
     Dates: start: 20210927
  13. PRIMPERAN [Concomitant]
     Active Substance: METOCLOPRAMIDE HYDROCHLORIDE
     Indication: Nausea
     Dosage: UNK, GIVEN FOR PROPHYLAXIS IS YES ;ONGOING: YES
     Route: 065
     Dates: start: 20210507
  14. PRIMPERAN [Concomitant]
     Active Substance: METOCLOPRAMIDE HYDROCHLORIDE
     Indication: Prophylaxis
     Dosage: UNK
     Route: 065
     Dates: start: 20220117
  15. HYDROCORTISONE [Concomitant]
     Active Substance: HYDROCORTISONE\HYDROCORTISONE ACETATE
     Indication: Adrenal insufficiency
     Dosage: UNK
     Route: 048
     Dates: start: 20220129
  16. KETOPROFEN [Concomitant]
     Active Substance: KETOPROFEN
     Indication: Sciatica
     Dosage: UNK, YES
     Route: 065
     Dates: start: 202109
  17. AMITRIPTYLINE HYDROCHLORIDE [Concomitant]
     Active Substance: AMITRIPTYLINE HYDROCHLORIDE
     Indication: Sciatica
     Dosage: UNK, YES
     Route: 065
     Dates: start: 202109
  18. NICOPATCH [Concomitant]
     Active Substance: NICOTINE
     Indication: Smoking cessation therapy
     Dosage: UNK, YES
     Route: 065
     Dates: start: 20210529
  19. NICORETTESKIN [Concomitant]
     Indication: Smoking cessation therapy
     Dosage: UNK, YES
     Route: 065
     Dates: start: 20210618
  20. PEMETREXED [Concomitant]
     Active Substance: PEMETREXED
     Indication: Non-small cell lung cancer
     Dosage: 825 MILLIGRAM (DOSE LAST STUDY DRUG ADMIN PRIOR AE: 875 MG)
     Route: 042
     Dates: start: 20210507
  21. Solupred [Concomitant]
     Indication: Prophylaxis
     Dosage: 50 MILLIGRAM, AS NECESSARY (GIVEN FOR PROPHYLAXIS IS YES ;ONGOING: YES)
     Route: 048
     Dates: start: 20210507
  22. ZIEXTENZO [Concomitant]
     Active Substance: PEGFILGRASTIM-BMEZ
     Indication: Prophylaxis
     Dosage: UNK, GIVEN FOR PROPHYLAXIS IS YES ;ONGOING: YES
     Route: 065
     Dates: start: 20210507
  23. ONDANSETRON [Concomitant]
     Active Substance: ONDANSETRON
     Indication: Prophylaxis
     Dosage: UNK, GIVEN FOR PROPHYLAXIS IS YES ;ONGOING: YES
     Route: 065
     Dates: start: 20210507

REACTIONS (1)
  - Hyperthyroidism [Recovered/Resolved]

NARRATIVE: CASE EVENT DATE: 20211222
